FAERS Safety Report 10726111 (Version 1)
Quarter: 2015Q1

REPORT INFORMATION
  Report Type: Spontaneous
  Country: US (occurrence: US)
  Receive Date: 20150121
  Receipt Date: 20150121
  Transmission Date: 20150721
  Serious: Yes (Hospitalization, Other)
  Sender: FDA-Public Use
  Company Number: US-AMGEN-USASP2015004470

PATIENT
  Age: 66 Year
  Sex: Female

DRUGS (1)
  1. ENBREL [Suspect]
     Active Substance: ETANERCEPT
     Indication: ANKYLOSING SPONDYLITIS
     Dosage: 25 MG, 2 TIMES/WK
     Route: 065
     Dates: start: 20031118

REACTIONS (7)
  - Muscular weakness [Recovered/Resolved]
  - Injection site pain [Recovered/Resolved]
  - Nerve root compression [Recovered/Resolved]
  - Hypoaesthesia [Recovered/Resolved]
  - Pain [Not Recovered/Not Resolved]
  - Arthritis infective [Not Recovered/Not Resolved]
  - Pain in extremity [Recovered/Resolved]
